FAERS Safety Report 13291174 (Version 1)
Quarter: 2017Q1

REPORT INFORMATION
  Report Type: Spontaneous
  Country: US (occurrence: US)
  Receive Date: 20170302
  Receipt Date: 20170302
  Transmission Date: 20170428
  Serious: Yes (Other)
  Sender: FDA-Public Use
  Company Number: None

PATIENT
  Age: 41 Year
  Sex: Female
  Weight: 133.6 kg

DRUGS (1)
  1. NOVOLOG [Suspect]
     Active Substance: INSULIN ASPART
     Indication: BLOOD GLUCOSE INCREASED
     Dosage: ?          QUANTITY:15 INJECTION(S);?
     Route: 058
     Dates: start: 20140115, end: 20170302

REACTIONS (4)
  - Headache [None]
  - Diarrhoea [None]
  - Dizziness [None]
  - Malaise [None]

NARRATIVE: CASE EVENT DATE: 20170213
